FAERS Safety Report 20144325 (Version 1)
Quarter: 2021Q4

REPORT INFORMATION
  Report Type: Report from Study
  Country: ID (occurrence: None)
  Receive Date: 20211203
  Receipt Date: 20211203
  Transmission Date: 20220303
  Serious: Yes (Death, Other)
  Sender: FDA-Public Use
  Company Number: 2021A807072

PATIENT
  Age: 24748 Day
  Sex: Male

DRUGS (1)
  1. TAGRISSO [Suspect]
     Active Substance: OSIMERTINIB
     Indication: Non-small cell lung cancer
     Route: 048
     Dates: start: 20211015

REACTIONS (4)
  - Death [Fatal]
  - Drug therapeutic incompatibility [Unknown]
  - Adenocarcinoma [Unknown]
  - K-ras gene mutation [Unknown]

NARRATIVE: CASE EVENT DATE: 20211118
